FAERS Safety Report 19414341 (Version 1)
Quarter: 2021Q2

REPORT INFORMATION
  Report Type: Spontaneous
  Country: FR (occurrence: FR)
  Receive Date: 20210614
  Receipt Date: 20210614
  Transmission Date: 20210717
  Serious: Yes (Hospitalization)
  Sender: FDA-Public Use
  Company Number: FR-ROCHE-2845749

PATIENT
  Age: 28 Year
  Sex: Female

DRUGS (1)
  1. HERCEPTIN [Suspect]
     Active Substance: TRASTUZUMAB
     Indication: BREAST CANCER
     Route: 065

REACTIONS (8)
  - Gait inability [Unknown]
  - Diplopia [Unknown]
  - Impaired driving ability [Unknown]
  - Metastases to central nervous system [Unknown]
  - Hydrocephalus [Unknown]
  - Tremor [Unknown]
  - Weight increased [Unknown]
  - Speech disorder [Unknown]

NARRATIVE: CASE EVENT DATE: 2019
